FAERS Safety Report 13711115 (Version 1)
Quarter: 2017Q2

REPORT INFORMATION
  Report Type: Spontaneous
  Country: US (occurrence: US)
  Receive Date: 20170630
  Receipt Date: 20170630
  Transmission Date: 20170830
  Serious: Yes (Hospitalization)
  Sender: FDA-Public Use
  Company Number: None

PATIENT
  Age: 65 Year
  Sex: Male
  Weight: 96.4 kg

DRUGS (1)
  1. ENOXAPARIN [Suspect]
     Active Substance: ENOXAPARIN
     Indication: DEEP VEIN THROMBOSIS
     Route: 058
     Dates: start: 20151015, end: 20151110

REACTIONS (7)
  - Hypotension [None]
  - Anaemia [None]
  - Duodenal ulcer [None]
  - Haemorrhage [None]
  - Blood creatinine increased [None]
  - Tachycardia [None]
  - Gastric ulcer [None]

NARRATIVE: CASE EVENT DATE: 20151106
